FAERS Safety Report 9717383 (Version 2)
Quarter: 2015Q3

REPORT INFORMATION
  Report Type: Spontaneous
  Country: US (occurrence: US)
  Receive Date: 20131127
  Receipt Date: 20150803
  Transmission Date: 20151125
  Serious: No
  Sender: FDA-Public Use
  Company Number: US-GILEAD-2008-0019609

PATIENT
  Age: 77 Year
  Sex: Female
  Weight: 57.61 kg

DRUGS (32)
  1. FLEXERIL [Concomitant]
     Active Substance: CYCLOBENZAPRINE HYDROCHLORIDE
  2. REFRESH EYE DROPS [Concomitant]
  3. PREDNISONE. [Concomitant]
     Active Substance: PREDNISONE
  4. CLONAZEPAM. [Concomitant]
     Active Substance: CLONAZEPAM
  5. REVATIO [Concomitant]
     Active Substance: SILDENAFIL CITRATE
  6. LISINOPRIL. [Concomitant]
     Active Substance: LISINOPRIL
  7. PERCOCET [Concomitant]
     Active Substance: ACETAMINOPHEN\OXYCODONE HYDROCHLORIDE
  8. FISH OIL [Concomitant]
     Active Substance: FISH OIL
  9. PROTONIX [Concomitant]
     Active Substance: PANTOPRAZOLE SODIUM
  10. METHOTREXATE [Concomitant]
     Active Substance: METHOTREXATE
  11. LEVOXYL [Concomitant]
     Active Substance: LEVOTHYROXINE SODIUM
  12. CELEBREX [Concomitant]
     Active Substance: CELECOXIB
  13. AZATHIOPRINE. [Concomitant]
     Active Substance: AZATHIOPRINE
  14. ACTONEL [Concomitant]
     Active Substance: RISEDRONATE SODIUM
  15. CALCIUM [Concomitant]
     Active Substance: CALCIUM
  16. LETAIRIS [Suspect]
     Active Substance: AMBRISENTAN
     Indication: PULMONARY ARTERIAL HYPERTENSION
     Route: 048
     Dates: start: 20080214
  17. AMBIEN CR [Concomitant]
     Active Substance: ZOLPIDEM TARTRATE
  18. FOLIC ACID. [Concomitant]
     Active Substance: FOLIC ACID
  19. MULTIVITAMIN [Concomitant]
     Active Substance: VITAMINS
  20. BUMEX [Concomitant]
     Active Substance: BUMETANIDE
  21. CITRATE OF MAGNESIUM [Concomitant]
     Active Substance: MAGNESIUM CITRATE
  22. MIRAPEX [Concomitant]
     Active Substance: PRAMIPEXOLE DIHYDROCHLORIDE
  23. ASPIRIN. [Concomitant]
     Active Substance: ASPIRIN
  24. PARACETAMOL/HYDROCODONE BITARTRATE [Concomitant]
  25. SYNTHROID [Concomitant]
     Active Substance: LEVOTHYROXINE SODIUM
  26. NASACORT [Concomitant]
     Active Substance: TRIAMCINOLONE ACETONIDE
  27. GLUCOSAMINE/CHONDROTIN [Concomitant]
  28. VITAMIN C [Concomitant]
     Active Substance: ASCORBIC ACID
  29. MEDROL [Concomitant]
     Active Substance: METHYLPREDNISOLONE
  30. BENADRYL [Concomitant]
     Active Substance: DIPHENHYDRAMINE HYDROCHLORIDE
  31. IRON [Concomitant]
     Active Substance: IRON
  32. NORVASC [Concomitant]
     Active Substance: AMLODIPINE BESYLATE

REACTIONS (2)
  - Nasal congestion [Unknown]
  - Nasal discomfort [Unknown]
